FAERS Safety Report 22267564 (Version 1)
Quarter: 2023Q2

REPORT INFORMATION
  Report Type: Spontaneous
  Country: FR (occurrence: FR)
  Receive Date: 20230430
  Receipt Date: 20230430
  Transmission Date: 20230721
  Serious: Yes (Hospitalization)
  Sender: FDA-Public Use
  Company Number: FR-AFSSAPS-PV2023000395

PATIENT
  Age: 15 Year
  Sex: Female
  Weight: 54 kg

DRUGS (4)
  1. RISPERIDONE [Suspect]
     Active Substance: RISPERIDONE
     Indication: Product used for unknown indication
     Dosage: 4 MILLIGRAM, 1 TOTAL (4 TABLETS OF 1 MG)
     Route: 048
     Dates: start: 20211217, end: 20211217
  2. CYAMEMAZINE [Suspect]
     Active Substance: CYAMEMAZINE
     Indication: Product used for unknown indication
     Dosage: 375 MILLIGRAM, 1 TOTAL (15 TABLETS OF 25 MG)
     Route: 048
     Dates: start: 20211217, end: 20211217
  3. DESLORATADINE [Suspect]
     Active Substance: DESLORATADINE
     Indication: Product used for unknown indication
     Dosage: 15 MILLIGRAM, 1 TOTAL (ALMUS, 3 TABLETS)
     Route: 048
     Dates: start: 20211218, end: 20211218
  4. TRIMEPRAZINE [Suspect]
     Active Substance: TRIMEPRAZINE
     Indication: Product used for unknown indication
     Dosage: 50 MILLIGRAM, 1 TOTAL (10 TABLETS OF 5 MG)
     Route: 048
     Dates: start: 20211218, end: 20211218

REACTIONS (2)
  - Anxiety [Unknown]
  - Intentional overdose [Recovered/Resolved]

NARRATIVE: CASE EVENT DATE: 20211217
